FAERS Safety Report 10164867 (Version 2)
Quarter: 2014Q2

REPORT INFORMATION
  Report Type: Spontaneous
  Country: US (occurrence: US)
  Receive Date: 20140510
  Receipt Date: 20140609
  Transmission Date: 20141212
  Serious: Yes (Other)
  Sender: FDA-Public Use
  Company Number: US-BRISTOL-MYERS SQUIBB COMPANY-20549598

PATIENT
  Sex: 0

DRUGS (1)
  1. BYETTA [Suspect]

REACTIONS (2)
  - Pancreatitis [Unknown]
  - Pancreatic carcinoma [Unknown]
